FAERS Safety Report 4857968-9 (Version None)
Quarter: 2005Q4

REPORT INFORMATION
  Report Type: 
  Country: None (occurrence: None)
  Receive Date: 20051219
  Receipt Date: 20050425
  Transmission Date: 20060501
  Serious: No
  Sender: FDA-Public Use
  Company Number: US-GLAXOSMITHKLINE-A0555508A

PATIENT
  Age: 45 Year
  Sex: Male

DRUGS (1)
  1. NICODERM CQ [Suspect]
     Dates: start: 20050325, end: 20050330

REACTIONS (2)
  - ABNORMAL DREAMS [None]
  - STOMACH DISCOMFORT [None]
